FAERS Safety Report 12675608 (Version 3)
Quarter: 2016Q4

REPORT INFORMATION
  Report Type: Spontaneous
  Country: FR (occurrence: FR)
  Receive Date: 20160823
  Receipt Date: 20161007
  Transmission Date: 20170207
  Serious: Yes (Death, Life-Threatening, Hospitalization)
  Sender: FDA-Public Use
  Company Number: FR-PACIRA PHARMACEUTICALS, INC.-2016DEPFR00684

PATIENT
  Age: 69 Year
  Sex: Female
  Weight: 70 kg

DRUGS (12)
  1. ICLUSIG [Suspect]
     Active Substance: PONATINIB
     Indication: LYMPHOCYTIC LEUKAEMIA
     Dosage: 45 MG, DAILY
     Route: 048
     Dates: start: 20160608, end: 20160615
  2. CLONAZEPAM. [Concomitant]
     Active Substance: CLONAZEPAM
     Dosage: 2 DF (2 DROPS), TID
  3. ICLUSIG [Suspect]
     Active Substance: PONATINIB
     Dosage: 30 MG, DAILY
     Route: 048
     Dates: start: 20160616, end: 20160620
  4. TARDYFERON [Concomitant]
     Active Substance: FERROUS SULFATE
     Dosage: 80 MG, DAILY
     Route: 065
  5. HYDROCORTISONE UPJOHN [Suspect]
     Active Substance: HYDROCORTISONE
     Indication: LYMPHOCYTIC LEUKAEMIA
     Dosage: 20 MG ADMINISTERED ON 30MAY2016, 01JUN2016, 03JUN2016, 08JUN2016
     Route: 037
     Dates: start: 20160530
  6. CACIT [Concomitant]
     Active Substance: CALCIUM\VITAMIN D
     Dosage: 2 DF (2 TABLETS), DAILY
     Route: 065
  7. VINDESINE [Suspect]
     Active Substance: VINDESINE
     Indication: LYMPHOCYTIC LEUKAEMIA
     Dosage: 2 MG/M2, QW (TOTAL DOSE 3.4 MG)
     Route: 042
     Dates: start: 20160608
  8. DEXAMETHASONE. [Suspect]
     Active Substance: DEXAMETHASONE
     Indication: LYMPHOCYTIC LEUKAEMIA
     Dosage: 20 MG EVERY WEEK
     Route: 042
     Dates: start: 20160608
  9. ARACYTINE [Suspect]
     Active Substance: CYTARABINE
     Indication: LYMPHOCYTIC LEUKAEMIA
     Dosage: 40 MG ADMINISTERED ON 30MAY2016, 01JUN2016, 03JUN2016, 08JUN2016
     Route: 037
     Dates: start: 20160530
  10. METHOTREXATE (METHOTREXATE SODIUM) [Suspect]
     Active Substance: METHOTREXATE SODIUM
     Indication: LYMPHOCYTIC LEUKAEMIA
     Dosage: 15 MG 30MAY2016, 01JUN2016, 03JUN2016, 08JUN2016
     Route: 037
     Dates: start: 20160530
  11. DEPOCYT [Suspect]
     Active Substance: CYTARABINE
     Indication: METASTASES TO MENINGES
     Dosage: 50 MG
     Route: 037
     Dates: start: 20160616, end: 20160616
  12. OMEPRAZOLE. [Concomitant]
     Active Substance: OMEPRAZOLE
     Dosage: 20 MG, DAILY
     Route: 065

REACTIONS (7)
  - Anaemia [Fatal]
  - Coma [Fatal]
  - Encephalopathy [Fatal]
  - Renal failure [Fatal]
  - Cholestasis [Fatal]
  - Thrombocytopenia [Fatal]
  - Condition aggravated [Not Recovered/Not Resolved]

NARRATIVE: CASE EVENT DATE: 201606
